FAERS Safety Report 5808943-9 (Version None)
Quarter: 2008Q3

REPORT INFORMATION
  Report Type: 
  Country: None (occurrence: None)
  Receive Date: 20080710
  Receipt Date: 20080710
  Transmission Date: 20090109
  Serious: Yes (Other)
  Sender: FDA-Public Use
  Company Number: None

PATIENT
  Age: 72 Year
  Sex: Female
  Weight: 79.3795 kg

DRUGS (1)
  1. LYRICA [Suspect]
     Indication: FIBROMYALGIA
     Dosage: 75MG TWICE DAILY PO, 7-10 DAYS
     Route: 048
     Dates: start: 20080121, end: 20080131

REACTIONS (4)
  - ABASIA [None]
  - HYPOTONIA [None]
  - MYALGIA [None]
  - PAIN [None]
